FAERS Safety Report 12465259 (Version 5)
Quarter: 2016Q3

REPORT INFORMATION
  Report Type: Report from Study
  Country: US (occurrence: US)
  Receive Date: 20160614
  Receipt Date: 20160810
  Transmission Date: 20161109
  Serious: Yes (Hospitalization, Other)
  Sender: FDA-Public Use
  Company Number: US-GILEAD-2016-0198932

PATIENT
  Age: 53 Year
  Sex: Female

DRUGS (5)
  1. POTASSIUM [Concomitant]
     Active Substance: POTASSIUM
  2. IDELALISIB [Suspect]
     Active Substance: IDELALISIB
     Indication: B-CELL LYMPHOMA
     Dosage: 150 MG, BID
     Route: 048
     Dates: start: 20160210, end: 20160519
  3. MILK OF MAGNESIA [Suspect]
     Active Substance: MAGNESIUM HYDROXIDE
     Indication: CONSTIPATION
     Dosage: UNK
     Route: 065
     Dates: start: 20160229
  4. IDELALISIB [Suspect]
     Active Substance: IDELALISIB
     Dosage: 150 MG, BID
     Route: 048
     Dates: start: 20160526, end: 20160715
  5. PHENERGAN [Suspect]
     Active Substance: PROMETHAZINE HYDROCHLORIDE
     Indication: NAUSEA
     Dosage: UNK
     Route: 065
     Dates: start: 2016

REACTIONS (38)
  - Fatigue [Unknown]
  - Stomatitis [Recovering/Resolving]
  - Diarrhoea [Unknown]
  - Diarrhoea [Recovered/Resolved]
  - Anal incontinence [Unknown]
  - Insomnia [Unknown]
  - Tearfulness [Unknown]
  - Oxygen saturation decreased [Recovering/Resolving]
  - White blood cell count increased [Recovering/Resolving]
  - Malaise [Unknown]
  - Peripheral swelling [Recovering/Resolving]
  - Emotional distress [Unknown]
  - Diarrhoea [Unknown]
  - Dehydration [Unknown]
  - Anxiety [Unknown]
  - Social avoidant behaviour [Not Recovered/Not Resolved]
  - Oropharyngeal pain [Unknown]
  - Red blood cell count increased [Recovering/Resolving]
  - Sepsis [Recovering/Resolving]
  - Tongue discolouration [Unknown]
  - Constipation [Unknown]
  - Feeling of despair [Unknown]
  - Dysgeusia [Unknown]
  - Nasopharyngitis [Unknown]
  - Lower respiratory tract congestion [Unknown]
  - Asthenia [Recovering/Resolving]
  - Hyperhidrosis [Unknown]
  - Nausea [Recovering/Resolving]
  - Abdominal pain upper [Unknown]
  - Hypotension [Recovering/Resolving]
  - Feeling abnormal [Unknown]
  - Lymphocyte count increased [Unknown]
  - Decreased appetite [Unknown]
  - Pruritus [Unknown]
  - Emotional disorder [Unknown]
  - Dizziness [Recovering/Resolving]
  - Vision blurred [Recovering/Resolving]
  - Ear infection [Unknown]

NARRATIVE: CASE EVENT DATE: 2016
